FAERS Safety Report 23849856 (Version 2)
Quarter: 2024Q2

REPORT INFORMATION
  Report Type: Spontaneous
  Country: NL (occurrence: NL)
  Receive Date: 20240513
  Receipt Date: 20240520
  Transmission Date: 20240716
  Serious: Yes (Death)
  Sender: FDA-Public Use
  Company Number: None

PATIENT
  Age: 56 Year
  Sex: Male
  Weight: 98 kg

DRUGS (4)
  1. LYRICA [Suspect]
     Active Substance: PREGABALIN
     Indication: Anxiety disorder
     Dosage: 150 MILLIGRAM, Q6H (150 MG 4X DAILY )
     Route: 065
     Dates: start: 20230118
  2. LYRICA [Suspect]
     Active Substance: PREGABALIN
     Dosage: 450 MILLIGRAM, QD (1X 300MG AND 1X 150MG
     Route: 065
     Dates: start: 20240223
  3. VENLAFAXINE [Concomitant]
     Active Substance: VENLAFAXINE HYDROCHLORIDE
     Dosage: 75 MILLIGRAM, QD
     Route: 065
  4. LORAZEPAM [Concomitant]
     Active Substance: LORAZEPAM
     Dosage: UNK
     Route: 065

REACTIONS (1)
  - Completed suicide [Fatal]
